FAERS Safety Report 8623724 (Version 3)
Quarter: 2014Q1

REPORT INFORMATION
  Report Type: Spontaneous
  Country: US (occurrence: None)
  Receive Date: 20120323
  Receipt Date: 20140306
  Transmission Date: 20141002
  Serious: Yes (Life-Threatening, Hospitalization, Other)
  Sender: FDA-Public Use
  Company Number: 163-21880-11060725

PATIENT
  Age: 66 Year
  Sex: Female

DRUGS (2)
  1. REVLIMID [Suspect]
     Indication: PLASMA CELL MYELOMA
     Dosage: 15 MG, 1 IN 1 D, PO ; PO
     Route: 048
     Dates: start: 20100610
  2. COUMADIN (WARFARIN SODIUM) [Concomitant]

REACTIONS (4)
  - Deep vein thrombosis [None]
  - Pain [None]
  - Thrombosis [None]
  - Neuropathy peripheral [None]
